FAERS Safety Report 14166134 (Version 1)
Quarter: 2017Q4

REPORT INFORMATION
  Report Type: Spontaneous
  Country: CN (occurrence: CN)
  Receive Date: 20171107
  Receipt Date: 20171107
  Transmission Date: 20180321
  Serious: Yes (Other)
  Sender: FDA-Public Use
  Company Number: CN-BAXTER-2017BAX037403

PATIENT
  Age: 5 Year
  Sex: Female
  Weight: 18 kg

DRUGS (2)
  1. ERWIN (ASPARAGINASE) [Suspect]
     Active Substance: ASPARAGINASE
     Indication: CHEMOTHERAPY
     Dosage: 8200 UNIT
     Route: 041
     Dates: start: 20170816, end: 20170816
  2. 0.9% SODIUM CHLORIDE INJECTION [Suspect]
     Active Substance: SODIUM CHLORIDE
     Indication: MEDICATION DILUTION
     Route: 041
     Dates: start: 20170816, end: 20170816

REACTIONS (4)
  - Angioedema [Recovering/Resolving]
  - Rash erythematous [Recovering/Resolving]
  - Infusion related reaction [None]
  - Pruritus [Recovering/Resolving]

NARRATIVE: CASE EVENT DATE: 20170816
